FAERS Safety Report 20942660 (Version 1)
Quarter: 2022Q2

REPORT INFORMATION
  Report Type: Spontaneous
  Country: NL (occurrence: NL)
  Receive Date: 20220610
  Receipt Date: 20220610
  Transmission Date: 20220721
  Serious: Yes (Hospitalization)
  Sender: FDA-Public Use
  Company Number: NL-STRIDES ARCOLAB LIMITED-2022SP006815

PATIENT
  Age: 68 Year
  Sex: Male

DRUGS (1)
  1. OXYCODONE [Suspect]
     Active Substance: OXYCODONE
     Indication: Back pain
     Dosage: 90 DOSAGE FORM EMPTY BOX OF 90 OXYCODONE 10 MG TABLETS NEXT TO HIS BED.
     Route: 065

REACTIONS (6)
  - Bezoar [Recovered/Resolved]
  - Poisoning [Recovered/Resolved]
  - Depressed level of consciousness [Recovered/Resolved]
  - Respiratory failure [Recovered/Resolved]
  - Hypoventilation [Recovered/Resolved]
  - Overdose [Unknown]
